FAERS Safety Report 18017063 (Version 3)
Quarter: 2024Q2

REPORT INFORMATION
  Report Type: Other
  Country: IT (occurrence: None)
  Receive Date: 20200714
  Receipt Date: 20240525
  Transmission Date: 20240716
  Serious: Yes (Other)
  Sender: FDA-Public Use
  Company Number: IT-ROCHE-2636201

PATIENT

DRUGS (11)
  1. TOCILIZUMAB [Suspect]
     Active Substance: TOCILIZUMAB
     Indication: COVID-19 pneumonia
     Dosage: MAXIMUM 800MG, IF REQUIRED DOSE WAS REPEATED AFTER 24 HOURS
     Route: 042
  2. TOCILIZUMAB [Suspect]
     Active Substance: TOCILIZUMAB
     Indication: Respiratory failure
  3. TOCILIZUMAB [Suspect]
     Active Substance: TOCILIZUMAB
     Indication: Inflammation
  4. TOCILIZUMAB [Suspect]
     Active Substance: TOCILIZUMAB
     Indication: COVID-19 pneumonia
     Dosage: IF REQUIRED DOSE WAS REPEATED AFTER 24 HOURS
     Route: 058
  5. TOCILIZUMAB [Suspect]
     Active Substance: TOCILIZUMAB
     Indication: Respiratory failure
  6. TOCILIZUMAB [Suspect]
     Active Substance: TOCILIZUMAB
     Indication: Inflammation
  7. HYDROXYCHLOROQUINE [Suspect]
     Active Substance: HYDROXYCHLOROQUINE
     Indication: COVID-19 pneumonia
     Dosage: UNLESS GLUCOSE-6-PHOSPHATE DEHYDROGENASE DEFICIENT.
     Route: 048
  8. METHYLPREDNISOLONE [Suspect]
     Active Substance: METHYLPREDNISOLONE
     Indication: COVID-19 pneumonia
     Route: 042
  9. METHYLPREDNISOLONE [Suspect]
     Active Substance: METHYLPREDNISOLONE
     Route: 042
  10. DARUNAVIR [Suspect]
     Active Substance: DARUNAVIR
     Indication: COVID-19 pneumonia
     Dosage: 800 UNIT NOT REPORTED
     Route: 065
  11. RITONAVIR [Suspect]
     Active Substance: RITONAVIR
     Indication: COVID-19 pneumonia
     Dosage: 100 UNIT NOT REPORTED
     Route: 065

REACTIONS (7)
  - Alanine aminotransferase increased [Unknown]
  - Neutropenia [Recovered/Resolved]
  - Pneumonia [Unknown]
  - Rash maculo-papular [Unknown]
  - Urinary tract infection [Unknown]
  - Haematological infection [Unknown]
  - Off label use [Unknown]
